FAERS Safety Report 18638007 (Version 1)
Quarter: 2020Q4

REPORT INFORMATION
  Report Type: Spontaneous
  Country: RO (occurrence: RO)
  Receive Date: 20201218
  Receipt Date: 20201218
  Transmission Date: 20210114
  Serious: Yes (Hospitalization, Other)
  Sender: FDA-Public Use
  Company Number: RO-GLAXOSMITHKLINE-RO2020EME245961

PATIENT
  Age: 8 Year
  Sex: Female
  Weight: 82 kg

DRUGS (2)
  1. LAMOTRIGINE. [Suspect]
     Active Substance: LAMOTRIGINE
     Indication: MYOCLONIC EPILEPSY
     Dosage: UNK
  2. DEPAKIN [Suspect]
     Active Substance: VALPROATE SODIUM
     Indication: MYOCLONIC EPILEPSY
     Dosage: UNK

REACTIONS (25)
  - Skin plaque [Recovered/Resolved]
  - Oral mucosa erosion [Recovered/Resolved]
  - Hypoproteinaemia [Recovered/Resolved]
  - Lung infiltration [Recovered/Resolved]
  - Pyrexia [Recovered/Resolved]
  - Hepatocellular injury [Recovered/Resolved]
  - Cyanosis [Recovered/Resolved]
  - Periorbital oedema [Recovered/Resolved]
  - Clonus [Recovered/Resolved]
  - Lip erosion [Recovered/Resolved]
  - Breath sounds abnormal [Recovered/Resolved]
  - Monocytosis [Recovered/Resolved]
  - Hyperglobulinaemia [Recovered/Resolved]
  - Selective IgG subclass deficiency [Recovered/Resolved]
  - Toxic epidermal necrolysis [Recovered/Resolved]
  - Inflammation [Recovered/Resolved]
  - Hypoalbuminaemia [Recovered/Resolved]
  - Epilepsy [Recovered/Resolved]
  - Oedema peripheral [Recovered/Resolved]
  - Loss of consciousness [Recovered/Resolved]
  - Abnormal precordial movement [Recovered/Resolved]
  - Respiratory sinus arrhythmia magnitude abnormal [Recovered/Resolved]
  - Urticaria [Recovered/Resolved]
  - Rash maculo-papular [Recovered/Resolved]
  - Conjunctivitis [Recovered/Resolved]
